FAERS Safety Report 5929950-1 (Version None)
Quarter: 2008Q4

REPORT INFORMATION
  Report Type: 
  Country: None (occurrence: None)
  Receive Date: 20081021
  Receipt Date: 20081010
  Transmission Date: 20090506
  Serious: Yes (Hospitalization)
  Sender: FDA-Public Use
  Company Number: 2008BI027313

PATIENT
  Sex: Female

DRUGS (5)
  1. AVONEX [Suspect]
     Indication: MULTIPLE SCLEROSIS
     Dosage: 30 UG;QW;IM, 30 UG;QW;IM, 30 UG;QW;IM
     Route: 030
     Dates: start: 20030303, end: 20030801
  2. AVONEX [Suspect]
     Indication: MULTIPLE SCLEROSIS
     Dosage: 30 UG;QW;IM, 30 UG;QW;IM, 30 UG;QW;IM
     Route: 030
     Dates: start: 20030801, end: 20070129
  3. AVONEX [Suspect]
     Indication: MULTIPLE SCLEROSIS
     Dosage: 30 UG;QW;IM, 30 UG;QW;IM, 30 UG;QW;IM
     Route: 030
     Dates: start: 20070401
  4. . [Concomitant]
  5. . [Concomitant]

REACTIONS (2)
  - INJURY [None]
  - VICTIM OF SEXUAL ABUSE [None]
